FAERS Safety Report 25317245 (Version 3)
Quarter: 2025Q2

REPORT INFORMATION
  Report Type: Spontaneous
  Country: US (occurrence: US)
  Receive Date: 20250515
  Receipt Date: 20250603
  Transmission Date: 20250716
  Serious: Yes (Hospitalization)
  Sender: DOMPE FARMACEUTICI
  Company Number: US-FARMAPROD-202409-3326

PATIENT
  Age: 84 Year
  Sex: Female
  Weight: 81.65 kg

DRUGS (26)
  1. OXERVATE [Suspect]
     Active Substance: CENEGERMIN-BKBJ
     Indication: Neurotrophic keratopathy
     Route: 047
     Dates: start: 20230126, end: 20230322
  2. OXERVATE [Suspect]
     Active Substance: CENEGERMIN-BKBJ
     Route: 047
     Dates: start: 20240812, end: 20241007
  3. OXERVATE [Suspect]
     Active Substance: CENEGERMIN-BKBJ
  4. OXERVATE [Suspect]
     Active Substance: CENEGERMIN-BKBJ
  5. OXERVATE [Suspect]
     Active Substance: CENEGERMIN-BKBJ
  6. OXERVATE [Suspect]
     Active Substance: CENEGERMIN-BKBJ
     Route: 047
     Dates: start: 20250424
  7. MELATONIN [Concomitant]
     Active Substance: MELATONIN
  8. LOW DOSE ASPIRIN EC [Concomitant]
  9. MINERALS\VITAMINS [Concomitant]
     Active Substance: MINERALS\VITAMINS
  10. CALCIUM 600-D3 PLUS [Concomitant]
  11. MYRBETRIQ [Concomitant]
     Active Substance: MIRABEGRON
  12. AZOPT [Concomitant]
     Active Substance: BRINZOLAMIDE
  13. TIMOLOL MALEATE [Concomitant]
     Active Substance: TIMOLOL MALEATE
  14. LATANOPROST [Concomitant]
     Active Substance: LATANOPROST
  15. LYRICA [Concomitant]
     Active Substance: PREGABALIN
  16. LYRICA [Concomitant]
     Active Substance: PREGABALIN
  17. IBRANCE [Concomitant]
     Active Substance: PALBOCICLIB
  18. DULOXETINE HYDROCHLORIDE [Concomitant]
     Active Substance: DULOXETINE HYDROCHLORIDE
  19. FASLODEX [Concomitant]
     Active Substance: FULVESTRANT
  20. PRAVASTATIN SODIUM [Concomitant]
     Active Substance: PRAVASTATIN SODIUM
  21. CELECOXIB [Concomitant]
     Active Substance: CELECOXIB
  22. ACETAMINOPHEN [Concomitant]
     Active Substance: ACETAMINOPHEN
  23. TRAMADOL HCL [Concomitant]
     Active Substance: TRAMADOL HYDROCHLORIDE
  24. VALACYCLOVIR [Concomitant]
     Active Substance: VALACYCLOVIR HYDROCHLORIDE
  25. GEMTESA [Concomitant]
     Active Substance: VIBEGRON
  26. TIMOLOL-BRIMONIDINE-DORZOLAMIDE [Concomitant]

REACTIONS (7)
  - Spinal operation [Unknown]
  - Dizziness [Unknown]
  - Somnolence [Unknown]
  - Eye pain [Unknown]
  - Eye irritation [Unknown]
  - Eyelid pain [Unknown]
  - Inappropriate schedule of product administration [Unknown]

NARRATIVE: CASE EVENT DATE: 20240916
